FAERS Safety Report 7384678-9 (Version None)
Quarter: 2011Q1

REPORT INFORMATION
  Report Type: 
  Country: None (occurrence: None)
  Receive Date: 20110330
  Receipt Date: 20110316
  Transmission Date: 20110831
  Serious: Yes (Other)
  Sender: FDA-Public Use
  Company Number: PHHY2011US22218

PATIENT
  Sex: Male
  Weight: 49 kg

DRUGS (1)
  1. EXJADE [Suspect]
     Indication: NEOPLASM
     Dosage: 1000 MG DAILY
     Route: 048
     Dates: start: 20100217

REACTIONS (2)
  - RENAL DISORDER [None]
  - DEAFNESS [None]
